FAERS Safety Report 23548056 (Version 2)
Quarter: 2024Q2

REPORT INFORMATION
  Report Type: Other
  Country: US (occurrence: US)
  Receive Date: 20240221
  Receipt Date: 20240512
  Transmission Date: 20240716
  Serious: No
  Sender: FDA-Public Use
  Company Number: US-TRAVERE-2024TVT00141

PATIENT
  Sex: Male

DRUGS (1)
  1. FILSPARI [Suspect]
     Active Substance: SPARSENTAN
     Indication: Product used for unknown indication
     Route: 048
     Dates: start: 20240201

REACTIONS (5)
  - Feeling cold [Unknown]
  - Dizziness [Unknown]
  - Chills [Unknown]
  - Skin discolouration [Unknown]
  - Wrong technique in product usage process [Unknown]
